FAERS Safety Report 15466367 (Version 10)
Quarter: 2019Q2

REPORT INFORMATION
  Report Type: Spontaneous
  Country: US (occurrence: US)
  Receive Date: 20181004
  Receipt Date: 20190422
  Transmission Date: 20190711
  Serious: Yes (Hospitalization, Other)
  Sender: FDA-Public Use
  Company Number: US-ACTELION-A-NJ2018-179386

PATIENT
  Age: 57 Year
  Sex: Female
  Weight: 67.12 kg

DRUGS (10)
  1. UPTRAVI [Suspect]
     Active Substance: SELEXIPAG
     Dosage: 200 MCG, QD EVENINGS
     Route: 048
  2. UPTRAVI [Suspect]
     Active Substance: SELEXIPAG
     Dosage: 400 MCG, BID
     Route: 048
  3. TADALAFIL. [Concomitant]
     Active Substance: TADALAFIL
  4. REMODULIN [Concomitant]
     Active Substance: TREPROSTINIL
     Dosage: 44NG
  5. UPTRAVI [Suspect]
     Active Substance: SELEXIPAG
     Dosage: 1200 MCG, QD
     Route: 048
  6. AMBRISENTAN [Suspect]
     Active Substance: AMBRISENTAN
     Indication: PULMONARY ARTERIAL HYPERTENSION
     Dosage: 10 MG, QD
     Route: 065
     Dates: start: 20101115
  7. UPTRAVI [Suspect]
     Active Substance: SELEXIPAG
     Dosage: 1200 MCG, QD MORNINGS
     Route: 048
  8. UPTRAVI [Suspect]
     Active Substance: SELEXIPAG
     Dosage: 1200 MCG, AM, 200 MCG, QD PM
     Route: 048
  9. UPTRAVI [Suspect]
     Active Substance: SELEXIPAG
     Indication: PULMONARY ARTERIAL HYPERTENSION
     Dosage: 600 MCG AM AND 400 MCG PM
     Route: 048
  10. ELIQUIS [Concomitant]
     Active Substance: APIXABAN

REACTIONS (14)
  - Craniocerebral injury [Unknown]
  - Headache [Not Recovered/Not Resolved]
  - Catheter site erythema [Unknown]
  - Dyspnoea [Not Recovered/Not Resolved]
  - Dyspnoea exertional [Not Recovered/Not Resolved]
  - Memory impairment [Not Recovered/Not Resolved]
  - Product dose omission [Unknown]
  - Catheter site pain [Unknown]
  - Diarrhoea [Not Recovered/Not Resolved]
  - Nausea [Not Recovered/Not Resolved]
  - Pulmonary embolism [Recovered/Resolved]
  - Fatigue [Not Recovered/Not Resolved]
  - Migraine [Not Recovered/Not Resolved]
  - Catheter site warmth [Unknown]
